FAERS Safety Report 15353997 (Version 1)
Quarter: 2018Q3

REPORT INFORMATION
  Report Type: Report from Study
  Country: US (occurrence: US)
  Receive Date: 20180906
  Receipt Date: 20180906
  Transmission Date: 20181010
  Serious: Yes (Hospitalization, Other)
  Sender: FDA-Public Use
  Company Number: US-AMGEN-USASL2018121129

PATIENT
  Sex: Female

DRUGS (1)
  1. ENBREL [Suspect]
     Active Substance: ETANERCEPT
     Indication: RHEUMATOID ARTHRITIS
     Dosage: UNK UNK, QWK
     Route: 065

REACTIONS (11)
  - Inflammation [Unknown]
  - Blindness [Unknown]
  - Malaise [Unknown]
  - Hypersensitivity [Unknown]
  - Localised infection [Unknown]
  - Burning sensation [Unknown]
  - Back pain [Unknown]
  - Apparent death [Unknown]
  - Ear discomfort [Unknown]
  - Clostridium difficile infection [Unknown]
  - Spinal operation [Unknown]
